FAERS Safety Report 7372819 (Version 5)
Quarter: 2014Q1

REPORT INFORMATION
  Report Type: Spontaneous
  Country: US (occurrence: US)
  Receive Date: 20100430
  Receipt Date: 20140103
  Transmission Date: 20141002
  Serious: Yes (Hospitalization, Other)
  Sender: FDA-Public Use
  Company Number: US-ASTRAZENECA-2010SE08422

PATIENT
  Age: 86 Year
  Sex: Male
  Weight: 74.8 kg

DRUGS (31)
  1. NEXIUM [Suspect]
     Indication: GASTROOESOPHAGEAL REFLUX DISEASE
     Route: 048
  2. NEXIUM [Suspect]
     Indication: DUODENAL ULCER HAEMORRHAGE
     Route: 048
  3. NEXIUM [Suspect]
     Indication: GASTROOESOPHAGEAL REFLUX DISEASE
     Route: 048
  4. NEXIUM [Suspect]
     Indication: DUODENAL ULCER HAEMORRHAGE
     Route: 048
  5. NEXIUM [Suspect]
     Indication: GASTROOESOPHAGEAL REFLUX DISEASE
     Route: 048
     Dates: start: 2007, end: 20131225
  6. NEXIUM [Suspect]
     Indication: DUODENAL ULCER HAEMORRHAGE
     Route: 048
     Dates: start: 2007, end: 20131225
  7. OMEPRAZOLE [Suspect]
     Route: 048
  8. ASPIRIN [Concomitant]
     Indication: ANTICOAGULANT THERAPY
     Route: 048
     Dates: start: 1999
  9. ASPIRIN [Concomitant]
     Indication: ANTICOAGULANT THERAPY
  10. PLAVIX [Concomitant]
     Indication: STENT PLACEMENT
     Route: 048
     Dates: start: 1999
  11. DIGITEK [Concomitant]
     Indication: CARDIAC DISORDER
     Route: 048
  12. DIGITEK [Concomitant]
     Indication: CARDIAC DISORDER
     Route: 048
     Dates: start: 1999
  13. FISH OIL [Concomitant]
     Route: 048
  14. LASIX [Concomitant]
     Indication: DIURETIC THERAPY
     Route: 048
     Dates: start: 1999
  15. LASIX [Concomitant]
     Indication: DIURETIC THERAPY
     Route: 048
     Dates: start: 1999
  16. COZAAR [Concomitant]
     Route: 048
  17. NITROSTAT [Concomitant]
     Indication: CHEST PAIN
     Route: 060
  18. NITROSTAT [Concomitant]
     Indication: CHEST DISCOMFORT
     Route: 060
  19. DESYREL [Concomitant]
     Indication: INSOMNIA
     Route: 048
  20. DESYREL [Concomitant]
     Indication: INSOMNIA
     Route: 048
  21. DESYREL [Concomitant]
     Indication: INSOMNIA
     Route: 048
     Dates: start: 1999, end: 2013
  22. ZOCOR [Concomitant]
  23. ROBAXIN [Concomitant]
     Dosage: 750 MG EVERY 12 HOURS, HALF TABLET WITH LUNCH AND ONE TABLET AT NIGHTTIME
     Route: 048
  24. LOPRESSOR [Concomitant]
     Indication: BLOOD PRESSURE ABNORMAL
     Route: 048
  25. LOPRESSOR [Concomitant]
     Indication: BLOOD PRESSURE ABNORMAL
     Route: 048
     Dates: start: 1999
  26. PRAVASTATIN [Concomitant]
     Indication: BLOOD CHOLESTEROL ABNORMAL
     Route: 048
  27. HYDRALAZINE [Concomitant]
     Route: 048
     Dates: start: 1999
  28. ISOSORBIDE [Concomitant]
     Route: 048
     Dates: start: 1999
  29. TEMAZEPAM [Concomitant]
     Indication: INSOMNIA
     Route: 048
     Dates: start: 2013
  30. CITALOPRAM [Concomitant]
     Indication: DEPRESSION
     Route: 048
     Dates: start: 201305
  31. SODIUM CHLORIDE [Concomitant]
     Indication: BLOOD SODIUM DECREASED
     Route: 048
     Dates: start: 201302

REACTIONS (21)
  - Acute myocardial infarction [Unknown]
  - Myocardial infarction [Unknown]
  - Ecchymosis [Unknown]
  - Lung neoplasm malignant [Unknown]
  - Aortic aneurysm [Not Recovered/Not Resolved]
  - Spinal osteoarthritis [Not Recovered/Not Resolved]
  - Cough [Unknown]
  - Choking [Unknown]
  - Injury [Unknown]
  - Back pain [Unknown]
  - Pain in extremity [Unknown]
  - Hearing impaired [Not Recovered/Not Resolved]
  - Kyphosis [Not Recovered/Not Resolved]
  - Hypotension [Unknown]
  - Blood chloride decreased [Unknown]
  - Blood potassium increased [Unknown]
  - Blood creatine decreased [Unknown]
  - Body height decreased [Not Recovered/Not Resolved]
  - Blood sodium decreased [Unknown]
  - Drug ineffective [Unknown]
  - Drug dose omission [Not Recovered/Not Resolved]
